FAERS Safety Report 7541530-3 (Version None)
Quarter: 2011Q2

REPORT INFORMATION
  Report Type: 
  Country: None (occurrence: None)
  Receive Date: 20110613
  Receipt Date: 20110601
  Transmission Date: 20111010
  Serious: Yes (Other)
  Sender: FDA-Public Use
  Company Number: JP-AMGEN-JPNSP2011029065

PATIENT
  Age: 76 Year
  Sex: Female
  Weight: 55 kg

DRUGS (8)
  1. PREDNISOLONE [Concomitant]
     Dosage: 4 MG, 1X/DAY
     Dates: start: 20100801, end: 20110201
  2. RHEUMATREX [Concomitant]
     Dosage: 6 MG, WEEKLY
     Dates: start: 20100801, end: 20110525
  3. PREDNISOLONE [Concomitant]
     Indication: RHEUMATOID ARTHRITIS
     Dosage: 5 MG, 1X/DAY
     Route: 048
     Dates: start: 20090611, end: 20100801
  4. PREDNISOLONE [Concomitant]
     Dosage: 3 MG, 1X/DAY
     Dates: start: 20110201
  5. RHEUMATREX [Concomitant]
     Dosage: 8 MG, WEEKLY
     Dates: start: 20090601, end: 20100801
  6. RHEUMATREX [Concomitant]
     Dosage: 6 MG, WEEKLY
     Dates: start: 20090611, end: 20090601
  7. ENBREL [Suspect]
     Indication: RHEUMATOID ARTHRITIS
     Dosage: 50 MG, WEEKLY
     Dates: start: 20110330, end: 20110525
  8. RHEUMATREX [Concomitant]
     Indication: RHEUMATOID ARTHRITIS
     Dosage: 4 MG, WEEKLY
     Route: 048
     Dates: start: 20090528, end: 20090611

REACTIONS (3)
  - HEPATIC FUNCTION ABNORMAL [None]
  - HAEMATURIA [None]
  - RENAL IMPAIRMENT [None]
